FAERS Safety Report 4701818-8 (Version None)
Quarter: 2005Q2

REPORT INFORMATION
  Report Type: 
  Country: None (occurrence: None)
  Receive Date: 20050627
  Receipt Date: 20050616
  Transmission Date: 20051028
  Serious: Yes (Hospitalization)
  Sender: FDA-Public Use
  Company Number: 2005_000023

PATIENT
  Age: 63 Year
  Sex: Female
  Weight: 90.2658 kg

DRUGS (1)
  1. DEPOCYT [Suspect]
     Indication: MENINGITIS
     Dosage: 50 MG; X1; INTRATHECAL
     Route: 037
     Dates: start: 20050407, end: 20050407

REACTIONS (3)
  - ARACHNOIDITIS [None]
  - DELIRIUM [None]
  - MENINGITIS BACTERIAL [None]
